FAERS Safety Report 5134144-6 (Version None)
Quarter: 2006Q4

REPORT INFORMATION
  Report Type: 
  Country: None (occurrence: None)
  Receive Date: 20061024
  Receipt Date: 20060322
  Transmission Date: 20070319
  Serious: Yes (Death)
  Sender: FDA-Public Use
  Company Number: US-SANOFI-SYNTHELABO-A03200601676

PATIENT
  Sex: Female

DRUGS (10)
  1. OXYGEN [Concomitant]
     Dosage: UNK
     Route: 065
  2. ALBUTEROL [Concomitant]
     Dosage: UNK
     Route: 065
  3. ACIPHEX [Concomitant]
     Dosage: UNK
     Route: 065
  4. NEURONTIN [Concomitant]
     Dosage: UNK
     Route: 065
  5. ASPIRIN [Concomitant]
     Dosage: UNK
     Route: 065
  6. SYNTHROID [Concomitant]
     Dosage: UNK
     Route: 065
  7. ISOSORBIDE [Concomitant]
     Dosage: UNK
     Route: 065
  8. POTASSIUM [Concomitant]
     Dosage: UNK
     Route: 065
  9. METOPROLOL [Concomitant]
     Dosage: UNK
     Route: 065
  10. PLAVIX [Suspect]
     Indication: DRUG USE FOR UNKNOWN INDICATION
     Dosage: UNK
     Route: 048

REACTIONS (2)
  - DRUG INEFFECTIVE [None]
  - MYOCARDIAL INFARCTION [None]
